FAERS Safety Report 14601915 (Version 1)
Quarter: 2018Q1

REPORT INFORMATION
  Report Type: Spontaneous
  Country: DK (occurrence: DK)
  Receive Date: 20180306
  Receipt Date: 20180306
  Transmission Date: 20180509
  Serious: Yes (Hospitalization, Other)
  Sender: FDA-Public Use
  Company Number: DK-CIPLA LTD.-2018DK08420

PATIENT

DRUGS (1)
  1. GEMCITABINE [Suspect]
     Active Substance: GEMCITABINE\GEMCITABINE HYDROCHLORIDE
     Indication: CHOLANGIOCARCINOMA
     Dosage: 2000 MG, UNK (STYRKE: 1 G)
     Route: 042
     Dates: start: 20170316, end: 20171208

REACTIONS (7)
  - Pyrexia [Unknown]
  - Thrombotic microangiopathy [Recovering/Resolving]
  - Renal failure [Not Recovered/Not Resolved]
  - Fluid overload [Unknown]
  - Dyspnoea [Unknown]
  - Neutropenia [Unknown]
  - Pancytopenia [Unknown]

NARRATIVE: CASE EVENT DATE: 20171201
